FAERS Safety Report 20657467 (Version 2)
Quarter: 2024Q1

REPORT INFORMATION
  Report Type: Spontaneous
  Country: US (occurrence: US)
  Receive Date: 20220331
  Receipt Date: 20240124
  Transmission Date: 20240410
  Serious: No
  Sender: FDA-Public Use
  Company Number: US-AMRING PHARMACEUTICALS INC.-2022US000351

PATIENT
  Age: 25 Year
  Sex: Male

DRUGS (1)
  1. MESALAMINE RECTAL [Suspect]
     Active Substance: MESALAMINE
     Indication: Colitis ulcerative
     Dosage: 1000 MG
     Route: 054
     Dates: start: 202201

REACTIONS (2)
  - Administration site pain [Not Recovered/Not Resolved]
  - Product physical issue [Not Recovered/Not Resolved]

NARRATIVE: CASE EVENT DATE: 20220101
